FAERS Safety Report 9921764 (Version 1)
Quarter: 2014Q1

REPORT INFORMATION
  Report Type: Spontaneous
  Country: US (occurrence: US)
  Receive Date: 20140225
  Receipt Date: 20140225
  Transmission Date: 20141002
  Serious: No
  Sender: FDA-Public Use
  Company Number: US-009507513-1402USA011412

PATIENT
  Age: 34 Year
  Sex: Female

DRUGS (7)
  1. CORICIDIN HBP COLD AND FLU [Suspect]
     Indication: HEADACHE
     Dosage: UNK, UNKNOWN
     Route: 048
  2. CORICIDIN HBP COLD AND FLU [Suspect]
     Indication: PAIN
  3. CORICIDIN HBP COLD AND FLU [Suspect]
     Indication: PYREXIA
  4. CORICIDIN HBP COLD AND FLU [Suspect]
     Indication: OROPHARYNGEAL PAIN
  5. CORICIDIN HBP COLD AND FLU [Suspect]
     Indication: NASOPHARYNGITIS
  6. CORICIDIN HBP COLD AND FLU [Suspect]
     Indication: COUGH
  7. CORICIDIN HBP COLD AND FLU [Suspect]
     Indication: SINUS DISORDER

REACTIONS (1)
  - Drug effect decreased [Unknown]
